FAERS Safety Report 8280328-8 (Version None)
Quarter: 2012Q2

REPORT INFORMATION
  Report Type: 
  Country: None (occurrence: None)
  Receive Date: 20120412
  Receipt Date: 20120302
  Transmission Date: 20120825
  Serious: No
  Sender: FDA-Public Use
  Company Number: US-ASTRAZENECA-2012SE15103

PATIENT
  Age: 51 Year
  Sex: Female

DRUGS (3)
  1. PRILOSEC [Suspect]
     Route: 048
  2. NEXIUM [Suspect]
     Route: 048
  3. VENTOLIN [Concomitant]

REACTIONS (4)
  - PANIC ATTACK [None]
  - DRUG EFFECT DECREASED [None]
  - ANXIETY [None]
  - MENTAL DISORDER [None]
